FAERS Safety Report 6685346-9 (Version None)
Quarter: 2010Q2

REPORT INFORMATION
  Report Type: 
  Country: None (occurrence: None)
  Receive Date: 20100416
  Receipt Date: 20100408
  Transmission Date: 20101027
  Serious: Yes (Other)
  Sender: FDA-Public Use
  Company Number: DE-AMGEN-QUU404283

PATIENT
  Age: 77 Year
  Sex: Female
  Weight: 55 kg

DRUGS (4)
  1. NPLATE [Suspect]
     Indication: THROMBOCYTOPENIA
     Route: 058
  2. ATENOLOL [Concomitant]
     Dates: start: 20090708, end: 20090815
  3. PREDNISOLONE [Concomitant]
  4. EPROSARTAN [Concomitant]

REACTIONS (6)
  - APATHY [None]
  - CONFUSIONAL STATE [None]
  - DISORIENTATION [None]
  - DIZZINESS [None]
  - MENTAL IMPAIRMENT [None]
  - VERTEBROBASILAR INSUFFICIENCY [None]
